FAERS Safety Report 23665143 (Version 1)
Quarter: 2024Q1

REPORT INFORMATION
  Report Type: Spontaneous
  Country: CA (occurrence: CA)
  Receive Date: 20240322
  Receipt Date: 20240322
  Transmission Date: 20240410
  Serious: Yes (Other)
  Sender: FDA-Public Use
  Company Number: CA-BIOMARINAP-CA-2024-156717

PATIENT

DRUGS (1)
  1. KUVAN [Suspect]
     Active Substance: SAPROPTERIN DIHYDROCHLORIDE
     Indication: Phenylketonuria
     Dosage: 1300 MILLIGRAM, QD
     Route: 048
     Dates: start: 20161107

REACTIONS (5)
  - Anaphylactic reaction [Unknown]
  - Urticaria cholinergic [Unknown]
  - Brain fog [Unknown]
  - Irritability [Unknown]
  - Rash [Unknown]
